FAERS Safety Report 9770350 (Version 1)
Quarter: 2013Q4

REPORT INFORMATION
  Report Type: Spontaneous
  Country: US (occurrence: US)
  Receive Date: 20131218
  Receipt Date: 20131218
  Transmission Date: 20140711
  Serious: No
  Sender: FDA-Public Use
  Company Number: US-TEVA-451864USA

PATIENT
  Age: 22 Year
  Sex: Female
  Weight: 81.72 kg

DRUGS (2)
  1. PLAN B ONE-STEP [Suspect]
     Indication: POST COITAL CONTRACEPTION
     Dosage: 1.5 MILLIGRAM DAILY;
     Route: 048
     Dates: start: 20131212, end: 20131212
  2. IBUPROFEN [Concomitant]
     Indication: TOOTHACHE
     Route: 048

REACTIONS (4)
  - Chest pain [Recovered/Resolved]
  - Back pain [Recovered/Resolved]
  - Nausea [Not Recovered/Not Resolved]
  - Abdominal pain lower [Not Recovered/Not Resolved]
